FAERS Safety Report 8598829-1 (Version None)
Quarter: 2012Q3

REPORT INFORMATION
  Report Type: 
  Country: None (occurrence: None)
  Receive Date: 20120803
  Receipt Date: 20120723
  Transmission Date: 20120928
  Serious: Yes (Other)
  Sender: FDA-Public Use
  Company Number: FK201202092

PATIENT
  Age: 78 Year
  Sex: Female

DRUGS (2)
  1. ANTIBACTERIALS FOR SYSTEMIC USE (ANTIBACTERIALS FOR SYSTEMIC USE) [Concomitant]
  2. AMIODARONE HCL [Suspect]
     Indication: ATRIAL FIBRILLATION
     Dosage: DAILY

REACTIONS (1)
  - EOSINOPHILIC PNEUMONIA [None]
